FAERS Safety Report 5080645-9 (Version None)
Quarter: 2006Q3

REPORT INFORMATION
  Report Type: 
  Country: None (occurrence: None)
  Receive Date: 20060720
  Receipt Date: 20051128
  Transmission Date: 20061208
  Serious: Yes (Hospitalization)
  Sender: FDA-Public Use
  Company Number: 2005161692

PATIENT
  Sex: Female

DRUGS (6)
  1. CELEBREX [Suspect]
     Indication: PAIN
  2. BEXTRA [Suspect]
     Indication: PAIN
  3. ADVIL [Suspect]
     Indication: BACK PAIN
     Dosage: 1200 MG (200 MG, 2 IN 3 D)
     Dates: start: 20040801, end: 20041101
  4. VIOXX [Suspect]
     Indication: PAIN
  5. TYLENOL W/ CODEINE [Suspect]
     Indication: PAIN
  6. ALEVE [Suspect]
     Indication: PAIN

REACTIONS (3)
  - GASTRITIS [None]
  - PAIN [None]
  - STOMACH DISCOMFORT [None]
